FAERS Safety Report 14544474 (Version 1)
Quarter: 2018Q1

REPORT INFORMATION
  Report Type: Spontaneous
  Country: US (occurrence: US)
  Receive Date: 20180217
  Receipt Date: 20180217
  Transmission Date: 20180509
  Serious: No
  Sender: FDA-Public Use
  Company Number: US-JNJFOC-20180138927

PATIENT
  Sex: Male
  Weight: 79.38 kg

DRUGS (2)
  1. ZYRTEC [Suspect]
     Active Substance: CETIRIZINE HYDROCHLORIDE
     Route: 065
  2. ZYRTEC [Suspect]
     Active Substance: CETIRIZINE HYDROCHLORIDE
     Indication: PRURITUS
     Dosage: 1 TABLET EVERY THREE OR FOUR DAYS
     Route: 065

REACTIONS (3)
  - Product use in unapproved indication [Unknown]
  - Product outer packaging issue [Unknown]
  - Off label use [Unknown]
